FAERS Safety Report 20937503 (Version 2)
Quarter: 2022Q2

REPORT INFORMATION
  Report Type: Spontaneous
  Country: US (occurrence: US)
  Receive Date: 20220609
  Receipt Date: 20220625
  Transmission Date: 20220721
  Serious: Yes (Other)
  Sender: FDA-Public Use
  Company Number: US-TEVA-2022-US-2043606

PATIENT
  Age: 75 Year
  Sex: Male

DRUGS (3)
  1. METOPROLOL SUCCINATE [Suspect]
     Active Substance: METOPROLOL SUCCINATE
     Indication: Essential hypertension
     Dosage: 400 MILLIGRAM DAILY;
     Route: 065
  2. CARBIDOPA\LEVODOPA [Concomitant]
     Active Substance: CARBIDOPA\LEVODOPA
     Indication: Dementia with Lewy bodies
     Dosage: 4 DOSAGE FORMS DAILY; CARBIDOPA-LEVODOPA 75/300MG FOUR TIMES
     Route: 065
  3. ASPIRIN [Concomitant]
     Active Substance: ASPIRIN
     Indication: Product used for unknown indication
     Dosage: 81 MILLIGRAM DAILY;
     Route: 065

REACTIONS (1)
  - Dementia with Lewy bodies [Recovering/Resolving]
